FAERS Safety Report 19677417 (Version 1)
Quarter: 2021Q3

REPORT INFORMATION
  Report Type: Spontaneous
  Country: IN (occurrence: IN)
  Receive Date: 20210810
  Receipt Date: 20210810
  Transmission Date: 20211014
  Serious: Yes (Other)
  Sender: FDA-Public Use
  Company Number: IN-ROCHE-2790923

PATIENT
  Age: 43 Year
  Sex: Female

DRUGS (3)
  1. ACCENTRIX [Suspect]
     Active Substance: RANIBIZUMAB
     Indication: VITREOUS HAEMORRHAGE
     Route: 065
  2. ACCENTRIX [Suspect]
     Active Substance: RANIBIZUMAB
     Indication: RETINAL NEOVASCULARISATION
     Route: 065
  3. ACCENTRIX [Suspect]
     Active Substance: RANIBIZUMAB
     Indication: RETINAL VEIN OCCLUSION
     Route: 065

REACTIONS (3)
  - Endophthalmitis [Unknown]
  - Vitreous floaters [Unknown]
  - Hypopyon [Unknown]
